FAERS Safety Report 10522949 (Version 2)
Quarter: 2014Q4

REPORT INFORMATION
  Report Type: Spontaneous
  Country: CL (occurrence: None)
  Receive Date: 20141010
  Receipt Date: 20141017
  Transmission Date: 20150528
  Serious: Yes (Other)
  Sender: FDA-Public Use
  Company Number: 7325636

PATIENT
  Age: 45 Year
  Sex: Female

DRUGS (1)
  1. EUTIROX (LEVOTHYROXINE SODIUM) [Suspect]
     Active Substance: LEVOTHYROXINE SODIUM
     Indication: HYPOTHYROIDISM
     Dosage: 2 TABLETS (100 MG), ORAL
     Route: 048
     Dates: end: 2014

REACTIONS (3)
  - Blood thyroid stimulating hormone increased [None]
  - Drug ineffective [None]
  - General physical health deterioration [None]

NARRATIVE: CASE EVENT DATE: 20140723
